FAERS Safety Report 9641467 (Version 1)
Quarter: 2013Q4

REPORT INFORMATION
  Report Type: Report from Study
  Country: US (occurrence: US)
  Receive Date: 20131023
  Receipt Date: 20131023
  Transmission Date: 20140711
  Serious: No
  Sender: FDA-Public Use
  Company Number: US-ABBVIE-13P-163-1110052-00

PATIENT
  Sex: Female
  Weight: 68.1 kg

DRUGS (2)
  1. LUPRON DEPOT [Suspect]
     Indication: UTERINE LEIOMYOMA
     Dates: start: 201304
  2. ASACOL [Concomitant]
     Indication: COLITIS ULCERATIVE

REACTIONS (3)
  - Depression [Unknown]
  - Libido decreased [Unknown]
  - Hot flush [Unknown]
